FAERS Safety Report 18571345 (Version 3)
Quarter: 2020Q4

REPORT INFORMATION
  Report Type: Spontaneous
  Country: ES (occurrence: ES)
  Receive Date: 20201202
  Receipt Date: 20201216
  Transmission Date: 20210114
  Serious: Yes (Hospitalization, Other)
  Sender: FDA-Public Use
  Company Number: ES-ALLERGAN-2046642US

PATIENT
  Sex: Female

DRUGS (5)
  1. MESALAZINE UNK [Suspect]
     Active Substance: MESALAMINE
     Indication: PROCTITIS ULCERATIVE
     Dosage: FOAM, A NIGHT-TIME APPLICATION
     Route: 054
     Dates: start: 202002
  2. MESALAZINE UNK [Suspect]
     Active Substance: MESALAMINE
     Dosage: 500 MG, Q8HR
     Route: 048
     Dates: start: 202002, end: 202005
  3. INFLIXIMAB [Concomitant]
     Active Substance: INFLIXIMAB
     Dosage: 5 MG/KG
     Dates: start: 202005
  4. METHYLPREDNISOLONE. [Concomitant]
     Active Substance: METHYLPREDNISOLONE
     Dosage: 60 MG, QD
     Route: 042
  5. MESALAZINE UNK [Suspect]
     Active Substance: MESALAMINE
     Indication: PROCTITIS ULCERATIVE
     Dosage: 4 G, QD
     Route: 048
     Dates: start: 202005

REACTIONS (2)
  - Proctitis ulcerative [Unknown]
  - Pericardial effusion [Recovered/Resolved]
